FAERS Safety Report 23792104 (Version 1)
Quarter: 2024Q2

REPORT INFORMATION
  Report Type: Report from Study
  Country: US (occurrence: US)
  Receive Date: 20240429
  Receipt Date: 20240429
  Transmission Date: 20240715
  Serious: Yes (Hospitalization, Other)
  Sender: FDA-Public Use
  Company Number: US-ABBVIE-5735665

PATIENT
  Age: 68 Year
  Sex: Female

DRUGS (1)
  1. RESTASIS [Suspect]
     Active Substance: CYCLOSPORINE
     Indication: Product used for unknown indication
     Dosage: 2 TIMES EACH EYE PER DAY?FORM STRENGTH- 0.5MG/ML
     Route: 047

REACTIONS (5)
  - Myocardial infarction [Unknown]
  - Blood pressure abnormal [Unknown]
  - Dry eye [Not Recovered/Not Resolved]
  - Fall [Unknown]
  - Hospitalisation [Unknown]

NARRATIVE: CASE EVENT DATE: 20230801
